FAERS Safety Report 4753689-1 (Version None)
Quarter: 2005Q3

REPORT INFORMATION
  Report Type: 
  Country: None (occurrence: None)
  Receive Date: 20050826
  Receipt Date: 20050819
  Transmission Date: 20060218
  Serious: Yes (Hospitalization)
  Sender: FDA-Public Use
  Company Number: CN-ABBOTT-05P-035-0308882-00

PATIENT
  Age: 60 Year
  Sex: Male

DRUGS (2)
  1. DEPAKENE [Suspect]
     Indication: EPILEPSY
     Route: 048
     Dates: start: 20050801, end: 20050801
  2. DEPAKENE [Suspect]
     Route: 048
     Dates: start: 20050801, end: 20050801

REACTIONS (1)
  - MANIA [None]
